FAERS Safety Report 4433513-7 (Version None)
Quarter: 2004Q3

REPORT INFORMATION
  Report Type: 
  Country: None (occurrence: None)
  Receive Date: 20040824
  Receipt Date: 20040809
  Transmission Date: 20050211
  Serious: No
  Sender: FDA-Public Use
  Company Number: 04P-144-0270180-00

PATIENT

DRUGS (8)
  1. ULTIVA [Suspect]
     Indication: POSTOPERATIVE ANALGESIA
     Dosage: 1 MCG/KG, MIN, INTRAVENOUS
     Route: 042
  2. MORPHINE HYDROCHLORIDE [Concomitant]
  3. HYOSCINE HBR HYT [Concomitant]
  4. MIDAZOLAM HCL [Concomitant]
  5. ETOMIDATE [Concomitant]
  6. SUCCINYLCHOLINE [Concomitant]
  7. PROPOFOL [Concomitant]
  8. VECURONIUM BROMIDE [Concomitant]

REACTIONS (4)
  - AGITATION [None]
  - HYPERHIDROSIS [None]
  - HYPERTENSION [None]
  - TACHYCARDIA [None]
